FAERS Safety Report 11064033 (Version 2)
Quarter: 2015Q2

REPORT INFORMATION
  Report Type: Report from Study
  Country: US (occurrence: US)
  Receive Date: 20150424
  Receipt Date: 20150601
  Transmission Date: 20150821
  Serious: Yes (Other)
  Sender: FDA-Public Use
  Company Number: US-BAYER-2015-067254

PATIENT
  Age: 61 Year
  Sex: Male

DRUGS (3)
  1. NEXAVAR [Suspect]
     Active Substance: SORAFENIB
     Indication: HEPATIC CANCER
     Dosage: 600MG,TWO TAB IN MORNING AND 1AT NIGHT
     Route: 048
     Dates: start: 20150317, end: 20150410
  2. NEXAVAR [Suspect]
     Active Substance: SORAFENIB
     Indication: HEPATIC CANCER
     Dosage: 400 MG, BID
     Route: 048
     Dates: start: 20150501, end: 20150522
  3. NEXAVAR [Suspect]
     Active Substance: SORAFENIB
     Indication: HEPATIC CANCER
     Dosage: 200 MG, BID
     Route: 048
     Dates: start: 20150217, end: 20150316

REACTIONS (8)
  - Pain in extremity [Not Recovered/Not Resolved]
  - Nausea [None]
  - Neoplasm progression [None]
  - Abdominal pain upper [None]
  - Cholelithiasis [None]
  - Ageusia [None]
  - Skin fissures [Not Recovered/Not Resolved]
  - Diarrhoea [None]

NARRATIVE: CASE EVENT DATE: 20150323
